FAERS Safety Report 23297114 (Version 1)
Quarter: 2023Q4

REPORT INFORMATION
  Report Type: Spontaneous
  Country: None (occurrence: US)
  Receive Date: 20231214
  Receipt Date: 20231214
  Transmission Date: 20240110
  Serious: No
  Sender: FDA-Public Use
  Company Number: US-Harrow Eye-2149364

PATIENT
  Sex: Male

DRUGS (7)
  1. MOXEZA [Suspect]
     Active Substance: MOXIFLOXACIN HYDROCHLORIDE
     Indication: Mycobacterium avium complex infection
     Route: 050
     Dates: start: 2022
  2. LINEZOLID [Suspect]
     Active Substance: LINEZOLID
  3. DOXYCYCLINE HYCLATE [Suspect]
     Active Substance: DOXYCYCLINE HYCLATE
  4. CIPROFLOXACIN [Suspect]
     Active Substance: CIPROFLOXACIN
  5. ETHAMBUTOL [Suspect]
     Active Substance: ETHAMBUTOL HYDROCHLORIDE
     Dates: start: 2022
  6. RIFABUTIN [Suspect]
     Active Substance: RIFABUTIN
     Dates: start: 2022
  7. RIFAMPIN [Suspect]
     Active Substance: RIFAMPIN

REACTIONS (1)
  - Drug resistance [None]
